FAERS Safety Report 18308512 (Version 1)
Quarter: 2020Q3

REPORT INFORMATION
  Report Type: Spontaneous
  Country: US (occurrence: US)
  Receive Date: 20200924
  Receipt Date: 20200924
  Transmission Date: 20201103
  Serious: No
  Sender: FDA-Public Use
  Company Number: NVSC2020US257448

PATIENT
  Sex: Female

DRUGS (1)
  1. COSENTYX [Suspect]
     Active Substance: SECUKINUMAB
     Indication: PUSTULAR PSORIASIS
     Dosage: 300 MG, OTHER (SUB Q WEEKS 0,1,2,3 AND 4, THEN EVERY 4 WEEKS)
     Route: 058
     Dates: start: 20200807

REACTIONS (1)
  - Product dose omission issue [Unknown]
